FAERS Safety Report 11550314 (Version 1)
Quarter: 2015Q3

REPORT INFORMATION
  Report Type: Spontaneous
  Country: GB (occurrence: GB)
  Receive Date: 20150924
  Receipt Date: 20150924
  Transmission Date: 20151125
  Serious: Yes (Other)
  Sender: FDA-Public Use
  Company Number: GB-ALLERGAN-1519293US

PATIENT
  Age: 42 Year
  Sex: Male
  Weight: 89 kg

DRUGS (9)
  1. LIDOCAINE. [Concomitant]
     Active Substance: LIDOCAINE
     Dosage: UNK
     Dates: start: 20150617, end: 20150618
  2. METHYLPREDNISOLONE ACETATE. [Concomitant]
     Active Substance: METHYLPREDNISOLONE ACETATE
     Dosage: UNK
     Dates: start: 20150617, end: 20150618
  3. ALLOPURINOL. [Concomitant]
     Active Substance: ALLOPURINOL
     Indication: GOUT
     Dosage: 1 DF, QD
     Dates: start: 20150902
  4. NAPROXEN. [Concomitant]
     Active Substance: NAPROXEN
     Dosage: 1 DF, BID
     Dates: start: 20150617, end: 20150701
  5. OCUFEN [Suspect]
     Active Substance: FLURBIPROFEN SODIUM
     Indication: PRODUCT USED FOR UNKNOWN INDICATION
     Dosage: UNK
     Dates: start: 20150902
  6. VISCOTEARS [Concomitant]
     Active Substance: CARBOMER
     Dosage: 1 GTT, PRN
     Route: 047
     Dates: start: 20150703, end: 20150704
  7. LANSOPRAZOLE. [Concomitant]
     Active Substance: LANSOPRAZOLE
     Dosage: 1 DF, QD
     Dates: start: 20150617, end: 20150812
  8. MAXITROL [Concomitant]
     Active Substance: DEXAMETHASONE\NEOMYCIN SULFATE\POLYMYXIN B SULFATE
     Dosage: 1 GTT, QID
     Route: 047
     Dates: start: 20150721, end: 20150731
  9. PRED FORTE [Concomitant]
     Active Substance: PREDNISOLONE ACETATE
     Indication: PRODUCT USED FOR UNKNOWN INDICATION
     Dosage: 1 GTT, UNK
     Dates: start: 20150803, end: 20150804

REACTIONS (2)
  - Abdominal discomfort [Recovered/Resolved]
  - Episcleritis [Not Recovered/Not Resolved]

NARRATIVE: CASE EVENT DATE: 20150902
